FAERS Safety Report 23409225 (Version 1)
Quarter: 2024Q1

REPORT INFORMATION
  Report Type: Spontaneous
  Country: ES (occurrence: ES)
  Receive Date: 20240117
  Receipt Date: 20240117
  Transmission Date: 20240410
  Serious: Yes (Other)
  Sender: FDA-Public Use
  Company Number: None

PATIENT
  Age: 81 Year
  Sex: Female

DRUGS (1)
  1. CIPROFLOXACIN [Suspect]
     Active Substance: CIPROFLOXACIN
     Indication: Urinary tract infection
     Dosage: 500 MG, Q24H
     Route: 048
     Dates: start: 20230927, end: 20231220

REACTIONS (2)
  - Oropharyngeal candidiasis [Recovered/Resolved]
  - Wrong schedule [Recovered/Resolved]

NARRATIVE: CASE EVENT DATE: 20230927
